FAERS Safety Report 20142720 (Version 1)
Quarter: 2021Q4

REPORT INFORMATION
  Report Type: Spontaneous
  Country: US (occurrence: None)
  Receive Date: 20211202
  Receipt Date: 20211202
  Transmission Date: 20220303
  Serious: No
  Sender: FDA-Public Use
  Company Number: US-ROCHE-2824618

PATIENT
  Age: 86 Year
  Sex: Male
  Weight: 99.880 kg

DRUGS (14)
  1. LUCENTIS [Suspect]
     Active Substance: RANIBIZUMAB
     Indication: Macular degeneration
     Dosage: ONE SHOT IN EACH EYE EVER 6-8 WEEKS ;
     Route: 050
  2. LUCENTIS [Suspect]
     Active Substance: RANIBIZUMAB
     Indication: Glaucoma
  3. LATANOPROST [Concomitant]
     Active Substance: LATANOPROST
     Indication: Glaucoma
     Dosage: ONE DROP IN EACH EYE
     Route: 031
  4. METFORMIN [Concomitant]
     Active Substance: METFORMIN HYDROCHLORIDE
     Indication: Diabetes mellitus
     Dates: start: 202102
  5. LOTEMAX [Concomitant]
     Active Substance: LOTEPREDNOL ETABONATE
     Dosage: 1 DROP IN BOTH EYES
     Route: 031
     Dates: start: 20210419
  6. ALPHAGAN P [Concomitant]
     Active Substance: BRIMONIDINE TARTRATE
     Indication: Macular degeneration
     Dosage: 1 DROP IN EACH EYE
     Route: 031
  7. ELIQUIS [Concomitant]
     Active Substance: APIXABAN
     Indication: Cardiac failure congestive
     Route: 048
  8. ELIQUIS [Concomitant]
     Active Substance: APIXABAN
     Indication: Pneumonia
  9. MINERALS\VITAMINS [Concomitant]
     Active Substance: MINERALS\VITAMINS
     Indication: Glaucoma
     Route: 048
  10. ISOSORBIDE [Concomitant]
     Active Substance: ISOSORBIDE
     Indication: Cardiac failure congestive
     Route: 048
     Dates: end: 2020
  11. ISOSORBIDE [Concomitant]
     Active Substance: ISOSORBIDE
     Route: 048
     Dates: start: 2020
  12. GABAPENTIN [Concomitant]
     Active Substance: GABAPENTIN
     Indication: Neuropathy peripheral
     Route: 048
  13. FUROSEMIDE [Concomitant]
     Active Substance: FUROSEMIDE
     Route: 048
  14. POTASSIUM [Concomitant]
     Active Substance: POTASSIUM
     Route: 048

REACTIONS (1)
  - Eye haemorrhage [Recovered/Resolved]

NARRATIVE: CASE EVENT DATE: 20210425
